FAERS Safety Report 13901188 (Version 3)
Quarter: 2018Q1

REPORT INFORMATION
  Report Type: Spontaneous
  Country: US (occurrence: US)
  Receive Date: 20170824
  Receipt Date: 20180226
  Transmission Date: 20180508
  Serious: No
  Sender: FDA-Public Use
  Company Number: US-INCYTE CORPORATION-2017IN006983

PATIENT

DRUGS (5)
  1. HYDROXYUREA. [Concomitant]
     Active Substance: HYDROXYUREA
     Indication: PRODUCT USED FOR UNKNOWN INDICATION
  2. JAKAFI [Suspect]
     Active Substance: RUXOLITINIB
     Indication: MYELOFIBROSIS
     Dosage: 20 MG, BID
     Route: 048
     Dates: start: 20130801
  3. OMEPRAZOLE. [Concomitant]
     Active Substance: OMEPRAZOLE
     Indication: PRODUCT USED FOR UNKNOWN INDICATION
  4. ATORVASTATIN [Concomitant]
     Active Substance: ATORVASTATIN
     Indication: PRODUCT USED FOR UNKNOWN INDICATION
  5. ASPIRIN                            /00002701/ [Concomitant]
     Active Substance: ASPIRIN
     Indication: PRODUCT USED FOR UNKNOWN INDICATION

REACTIONS (12)
  - Burning sensation [Unknown]
  - Haemoglobin decreased [Unknown]
  - Cardiac disorder [Recovered/Resolved]
  - Drug dose omission [Unknown]
  - Contusion [Unknown]
  - Salivary hypersecretion [Unknown]
  - Anaemia [Unknown]
  - Intentional product use issue [Unknown]
  - Malaise [Unknown]
  - Cardiac valve disease [Unknown]
  - Dizziness [Not Recovered/Not Resolved]
  - Splenomegaly [Unknown]

NARRATIVE: CASE EVENT DATE: 2016
